FAERS Safety Report 20354560 (Version 1)
Quarter: 2022Q1

REPORT INFORMATION
  Report Type: Spontaneous
  Country: US (occurrence: US)
  Receive Date: 20220120
  Receipt Date: 20220120
  Transmission Date: 20220423
  Serious: Yes (Other)
  Sender: FDA-Public Use
  Company Number: US-CELLTRION INC.-2022US000423

PATIENT

DRUGS (2)
  1. TRUXIMA [Suspect]
     Active Substance: RITUXIMAB-ABBS
     Indication: Cryoglobulinaemia
     Dosage: 600 MG DAY 1, 15, 22 Q 28 DAYS
  2. TRUXIMA [Suspect]
     Active Substance: RITUXIMAB-ABBS
     Indication: Polyneuropathy
     Dosage: 600MG DAY 1, 15, 22 Q 28 DAYS
     Dates: start: 20220113

REACTIONS (3)
  - Polyneuropathy [Unknown]
  - Cryoglobulinaemia [Unknown]
  - Off label use [Unknown]
